FAERS Safety Report 6599511-2 (Version None)
Quarter: 2010Q1

REPORT INFORMATION
  Report Type: 
  Country: None (occurrence: None)
  Receive Date: 20100217
  Receipt Date: 20100202
  Transmission Date: 20100710
  Serious: Yes (Other)
  Sender: FDA-Public Use
  Company Number: DSA_42553_2010

PATIENT

DRUGS (1)
  1. APLENZIN [Suspect]
     Indication: DRUG USE FOR UNKNOWN INDICATION
     Dosage: (DF)

REACTIONS (3)
  - ALCOHOL USE [None]
  - CONVULSION [None]
  - GASTROINTESTINAL INFECTION [None]
